FAERS Safety Report 4751746-7 (Version None)
Quarter: 2005Q3

REPORT INFORMATION
  Report Type: 
  Country: None (occurrence: None)
  Receive Date: 20050824
  Receipt Date: 20050815
  Transmission Date: 20060218
  Serious: Yes (Other)
  Sender: FDA-Public Use
  Company Number: 200516257US

PATIENT
  Age: 19 Year
  Sex: Female

DRUGS (1)
  1. ALLEGRA-D [Suspect]
     Indication: MULTIPLE ALLERGIES
     Dosage: DOSE: 180/240
     Route: 048

REACTIONS (2)
  - FOREIGN BODY TRAUMA [None]
  - SENSATION OF FOREIGN BODY [None]
